FAERS Safety Report 15043432 (Version 1)
Quarter: 2018Q2

REPORT INFORMATION
  Report Type: Spontaneous
  Country: US (occurrence: US)
  Receive Date: 20180621
  Receipt Date: 20180621
  Transmission Date: 20180711
  Serious: No
  Sender: FDA-Public Use
  Company Number: US-SA-2018SA156835

PATIENT
  Age: 49 Year
  Sex: Female

DRUGS (2)
  1. LANTUS [Suspect]
     Active Substance: INSULIN GLARGINE
     Indication: TYPE 2 DIABETES MELLITUS
     Dosage: 70 U, QD
  2. LANTUS [Suspect]
     Active Substance: INSULIN GLARGINE
     Indication: CARDIAC DISORDER

REACTIONS (2)
  - Device defective [Unknown]
  - Drug dose omission [Unknown]
